FAERS Safety Report 13496438 (Version 1)
Quarter: 2017Q2

REPORT INFORMATION
  Report Type: Report from Study
  Country: US (occurrence: US)
  Receive Date: 20170428
  Receipt Date: 20170428
  Transmission Date: 20170830
  Serious: Yes (Death)
  Sender: FDA-Public Use
  Company Number: US-PFIZER INC-2017181271

PATIENT
  Age: 5 Year
  Sex: Female

DRUGS (4)
  1. ATROPINE SULFATE. [Suspect]
     Active Substance: ATROPINE SULFATE
     Indication: ANAESTHESIA
     Dosage: 0.4 MG, UNK
  2. MORPHINE SULFATE. [Suspect]
     Active Substance: MORPHINE SULFATE
     Indication: ANAESTHESIA
     Dosage: 4 MG, UNK
  3. ETHYL ETHER [Suspect]
     Active Substance: ETHER
     Indication: ANAESTHESIA
     Dosage: UNK
  4. VINYL ETHER [Suspect]
     Active Substance: VINYL ETHER
     Indication: ANAESTHESIA
     Dosage: UNK

REACTIONS (1)
  - Hepatitis infectious [Fatal]
